FAERS Safety Report 22057848 (Version 1)
Quarter: 2023Q1

REPORT INFORMATION
  Report Type: Spontaneous
  Country: US (occurrence: US)
  Receive Date: 20230303
  Receipt Date: 20230303
  Transmission Date: 20230417
  Serious: Yes (Death, Other)
  Sender: FDA-Public Use
  Company Number: US-AUROBINDO-AUR-APL-2023-009153

PATIENT
  Age: 59 Year
  Sex: Male

DRUGS (1)
  1. AMLODIPINE [Suspect]
     Active Substance: AMLODIPINE BESYLATE
     Indication: Product used for unknown indication
     Dosage: UNK
     Route: 065

REACTIONS (12)
  - Acute kidney injury [Fatal]
  - Bradycardia [Fatal]
  - Coma [Fatal]
  - Depressed level of consciousness [Fatal]
  - Electrocardiogram QRS complex prolonged [Fatal]
  - Respiratory depression [Fatal]
  - Intestinal ischaemia [Fatal]
  - Pancreatitis [Fatal]
  - Anion gap [Fatal]
  - Metabolic acidosis [Fatal]
  - Hypotension [Fatal]
  - Toxicity to various agents [Fatal]
